APPROVED DRUG PRODUCT: ROCURONIUM BROMIDE
Active Ingredient: ROCURONIUM BROMIDE
Strength: 50MG/5ML (10MG/ML)
Dosage Form/Route: INJECTABLE;INJECTION
Application: A217034 | Product #001
Applicant: HIKMA PHARMACEUTICALS USA INC
Approved: May 24, 2023 | RLD: No | RS: No | Type: DISCN